FAERS Safety Report 9838855 (Version 1)
Quarter: 2014Q1

REPORT INFORMATION
  Report Type: Spontaneous
  Country: JP (occurrence: JP)
  Receive Date: 20140123
  Receipt Date: 20140123
  Transmission Date: 20141002
  Serious: Yes (Other)
  Sender: FDA-Public Use
  Company Number: JP-ACTAVIS-2014-00584

PATIENT
  Age: 37 Year
  Sex: Male

DRUGS (13)
  1. ACETAMINOPHEN (UNKNOWN) [Suspect]
     Indication: OROPHARYNGEAL PAIN
     Dosage: UNK
     Route: 065
  2. CARBAMAZEPINE (UNKNOWN) [Suspect]
     Indication: DEPRESSION
     Dosage: UNK
     Route: 065
  3. FLUNITRAZEPAM [Concomitant]
     Indication: DEPRESSION
     Dosage: UNK
     Route: 065
  4. QUETIAPINE FUMARATE [Concomitant]
     Indication: DEPRESSION
     Dosage: UNK
     Route: 065
  5. RISPERIDONE [Concomitant]
     Indication: DEPRESSION
     Dosage: UNK
     Route: 065
  6. LEVOMEPROMAZINE [Concomitant]
     Indication: DEPRESSION
     Dosage: UNK
     Route: 065
  7. BIPERIDEN [Concomitant]
     Indication: DEPRESSION
     Dosage: UNK
     Route: 065
  8. LOXOPROFEN SODIUM [Concomitant]
     Indication: OROPHARYNGEAL PAIN
     Dosage: UNK
     Route: 065
  9. MIGRENIN [Concomitant]
     Indication: OROPHARYNGEAL PAIN
     Dosage: UNK
     Route: 065
  10. CIPROFLOXACIN HYDROCHLORIDE [Concomitant]
     Indication: OROPHARYNGEAL PAIN
     Dosage: UNK
     Route: 065
  11. SERRAPEPTASE [Concomitant]
     Indication: OROPHARYNGEAL PAIN
     Dosage: UNK
     Route: 065
  12. DIMEMORFAN PHOSPHATE [Concomitant]
     Indication: OROPHARYNGEAL PAIN
     Dosage: UNK
     Route: 065
  13. DICLOFENAC [Concomitant]
     Indication: OROPHARYNGEAL PAIN
     Dosage: UNK
     Route: 065

REACTIONS (2)
  - Toxic epidermal necrolysis [Recovered/Resolved]
  - Human herpesvirus 7 infection [Unknown]
